FAERS Safety Report 9831716 (Version 3)
Quarter: 2014Q1

REPORT INFORMATION
  Report Type: Report from Study
  Country: CA (occurrence: CA)
  Receive Date: 20140121
  Receipt Date: 20140203
  Transmission Date: 20141002
  Serious: Yes (Hospitalization)
  Sender: FDA-Public Use
  Company Number: CA-ROCHE-1327941

PATIENT
  Age: 68 Year
  Sex: Female

DRUGS (9)
  1. PERTUZUMAB [Suspect]
     Indication: BREAST CANCER
     Dosage: LOADING DOSE, 1 CYCLE=21 DAYS?MOST RECENT DOSE RECEIVED: 18/DEC/2013
     Route: 042
     Dates: start: 20131218
  2. PERTUZUMAB [Suspect]
     Dosage: MAINTENACE DOSE, MOST RECENT DOSE RECEIVED : 18/DEC/2013?1 CYCLE=21 DAYS
     Route: 042
  3. TRASTUZUMAB [Suspect]
     Indication: BREAST CANCER
     Dosage: LOADING DOSE, 1 CYCLE=21 DAYS?MOST RECENT DOSE RECEIVED : 19/DEC/2013
     Route: 042
     Dates: start: 20131219
  4. PACLITAXEL [Suspect]
     Indication: BREAST CANCER
     Dosage: 1 CYCLE=21 DAYS?MOST RECENT DOSE RECEIVED : 20/DEC/2013
     Route: 042
     Dates: start: 20131220
  5. CLONAZEPAM [Concomitant]
     Route: 065
     Dates: start: 20131110
  6. TYLENOL WITH CODEINE [Concomitant]
     Dosage: 30MG 1-2 TAB Q6H PRN
     Route: 065
     Dates: start: 20131110
  7. DEXAMETHASONE [Concomitant]
     Dosage: 4MG PO Q AM
     Route: 048
     Dates: start: 20131129
  8. TRAZODONE [Concomitant]
     Dosage: 50MG 1-2 TAB HS
     Route: 065
     Dates: end: 201011
  9. ATORVASTATIN [Concomitant]
     Route: 065
     Dates: start: 201311

REACTIONS (1)
  - Dyspnoea [Not Recovered/Not Resolved]
